FAERS Safety Report 17160305 (Version 9)
Quarter: 2023Q2

REPORT INFORMATION
  Report Type: Spontaneous
  Country: US (occurrence: US)
  Receive Date: 20191216
  Receipt Date: 20230515
  Transmission Date: 20230722
  Serious: Yes (Other)
  Sender: FDA-Public Use
  Company Number: US-PFIZER INC-2019537609

PATIENT
  Age: 42 Year
  Sex: Female

DRUGS (1)
  1. METHOTREXATE SODIUM [Suspect]
     Active Substance: METHOTREXATE SODIUM
     Dosage: 50 MG, WEEKLY
     Route: 058

REACTIONS (10)
  - Diabetes mellitus [Unknown]
  - Cervical dysplasia [Unknown]
  - Vitamin D deficiency [Unknown]
  - Pain in extremity [Not Recovered/Not Resolved]
  - Arthralgia [Not Recovered/Not Resolved]
  - Synovitis [Unknown]
  - Drug hypersensitivity [Unknown]
  - Nausea [Unknown]
  - Interferon gamma release assay positive [Unknown]
  - Dermatitis allergic [Unknown]
